FAERS Safety Report 25472242 (Version 1)
Quarter: 2025Q2

REPORT INFORMATION
  Report Type: Spontaneous
  Country: CN (occurrence: CN)
  Receive Date: 20250624
  Receipt Date: 20250624
  Transmission Date: 20250717
  Serious: Yes (Hospitalization, Other)
  Sender: BAXTER
  Company Number: None

PATIENT
  Age: 59 Year
  Sex: Female
  Weight: 75 kg

DRUGS (4)
  1. CYCLOPHOSPHAMIDE [Suspect]
     Active Substance: CYCLOPHOSPHAMIDE
     Indication: Diffuse large B-cell lymphoma
     Dosage: 200 MG, QD
     Route: 041
     Dates: start: 20250524, end: 20250528
  2. RITUXIMAB [Suspect]
     Active Substance: RITUXIMAB
     Indication: Diffuse large B-cell lymphoma
     Dosage: 700 MG, QD
     Route: 041
     Dates: start: 20250601, end: 20250601
  3. EPIRUBICIN HYDROCHLORIDE [Suspect]
     Active Substance: EPIRUBICIN HYDROCHLORIDE
     Indication: Diffuse large B-cell lymphoma
     Dosage: 60 MG, QD
     Route: 041
     Dates: start: 20250527, end: 20250528
  4. POLIVY [Suspect]
     Active Substance: POLATUZUMAB VEDOTIN-PIIQ
     Indication: Diffuse large B-cell lymphoma
     Dosage: 60 MG, QD
     Route: 041
     Dates: start: 20250530, end: 20250531

REACTIONS (36)
  - Mental impairment [Unknown]
  - Myelosuppression [Recovering/Resolving]
  - White blood cell count decreased [Unknown]
  - Neutrophil count decreased [Unknown]
  - Haemoglobin decreased [Unknown]
  - Platelet count decreased [Unknown]
  - Irritability [Unknown]
  - Anger [Unknown]
  - Agitation [Unknown]
  - Pallor [Unknown]
  - Lymphadenopathy [Unknown]
  - Breath sounds abnormal [Unknown]
  - Abdominal distension [Unknown]
  - Serum amyloid A protein increased [Unknown]
  - Prealbumin decreased [Unknown]
  - Blood alkaline phosphatase decreased [Unknown]
  - Protein total decreased [Unknown]
  - Blood albumin decreased [Unknown]
  - Blood cholinesterase decreased [Unknown]
  - Cystatin C increased [Unknown]
  - Blood potassium decreased [Unknown]
  - Blood sodium increased [Unknown]
  - Blood calcium decreased [Unknown]
  - Blood magnesium decreased [Unknown]
  - Blood phosphorus decreased [Unknown]
  - Interleukin level increased [Unknown]
  - Procalcitonin increased [Unknown]
  - Activated partial thromboplastin time shortened [Unknown]
  - Blood fibrinogen decreased [Unknown]
  - Thrombin time prolonged [Unknown]
  - Fibrin D dimer increased [Unknown]
  - Blood glucose increased [Unknown]
  - Abdominal pain [Unknown]
  - Pyrexia [Unknown]
  - Blood lactate dehydrogenase increased [Unknown]
  - Blood urea increased [Unknown]

NARRATIVE: CASE EVENT DATE: 20250602
